FAERS Safety Report 21796106 (Version 1)
Quarter: 2022Q4

REPORT INFORMATION
  Report Type: Spontaneous
  Country: US (occurrence: US)
  Receive Date: 20221229
  Receipt Date: 20221229
  Transmission Date: 20230113
  Serious: Yes (Life-Threatening, Other)
  Sender: FDA-Public Use
  Company Number: US-BRACCO-2022US05730

PATIENT
  Age: 7 Decade
  Sex: Female

DRUGS (6)
  1. ISOVUE 370 [Suspect]
     Active Substance: IOPAMIDOL
     Indication: Angiogram pulmonary
     Dosage: 100 ML, SINGLE
     Route: 042
  2. CEFTRIAXONE [Concomitant]
     Active Substance: CEFTRIAXONE
     Route: 042
  3. AZITHROMYCIN [Concomitant]
     Active Substance: AZITHROMYCIN
     Route: 042
  4. METHYLPREDNISOLONE [Concomitant]
     Active Substance: METHYLPREDNISOLONE
     Route: 042
  5. METOPROLOL [Concomitant]
     Active Substance: METOPROLOL
     Route: 042
  6. APIXABAN 2.5 ZYDUS [Concomitant]
     Dosage: UNK

REACTIONS (2)
  - Contrast encephalopathy [Recovered/Resolved]
  - Blood pressure increased [Recovered/Resolved]
